FAERS Safety Report 19663909 (Version 1)
Quarter: 2021Q3

REPORT INFORMATION
  Report Type: Report from Study
  Country: HK (occurrence: HK)
  Receive Date: 20210805
  Receipt Date: 20210805
  Transmission Date: 20211014
  Serious: Yes (Other)
  Sender: FDA-Public Use
  Company Number: HK-TEVA-2021-HK-1938232

PATIENT
  Age: 25 Year
  Sex: Female

DRUGS (7)
  1. BISACODYL. [Suspect]
     Active Substance: BISACODYL
     Indication: DRUG THERAPY
     Route: 065
  2. FLUOXETINE [Suspect]
     Active Substance: FLUOXETINE HYDROCHLORIDE
     Indication: DRUG THERAPY
     Route: 065
  3. CHLORPHENIRAMINE. [Suspect]
     Active Substance: CHLORPHENIRAMINE
     Indication: DRUG THERAPY
     Route: 065
  4. HYDROCHLOROTHIAZIDE. [Suspect]
     Active Substance: HYDROCHLOROTHIAZIDE
     Indication: DRUG THERAPY
     Route: 065
  5. MELATONIN [Suspect]
     Active Substance: MELATONIN
     Indication: DRUG THERAPY
     Route: 065
  6. SIBUTRAMINE [Suspect]
     Active Substance: SIBUTRAMINE
     Indication: DRUG THERAPY
     Route: 065
  7. PYRIDOXINE [Suspect]
     Active Substance: PYRIDOXINE
     Indication: DRUG THERAPY
     Route: 065

REACTIONS (6)
  - Intentional product misuse [Unknown]
  - Hyponatraemia [Unknown]
  - Hypokalaemia [Unknown]
  - Toxicity to various agents [Unknown]
  - Palpitations [Unknown]
  - Off label use [Unknown]
